FAERS Safety Report 24197238 (Version 1)
Quarter: 2024Q3

REPORT INFORMATION
  Report Type: Spontaneous
  Country: US (occurrence: US)
  Receive Date: 20240810
  Receipt Date: 20240810
  Transmission Date: 20241017
  Serious: No
  Sender: JOHNSON AND JOHNSON
  Company Number: US-JNJFOC-20240801072

PATIENT
  Sex: Female

DRUGS (1)
  1. MENS ROGAINE EXTRA STRENGTH [Suspect]
     Active Substance: MINOXIDIL
     Indication: Alopecia
     Dosage: USED A WHOLE DROPPER FULL
     Route: 061

REACTIONS (9)
  - Product package associated injury [Unknown]
  - Alopecia [Unknown]
  - Hair texture abnormal [Unknown]
  - Hair growth abnormal [Unknown]
  - Off label use [Unknown]
  - Therapeutic response unexpected [Unknown]
  - Product closure removal difficult [Unknown]
  - Product colour issue [Unknown]
  - Product packaging issue [Unknown]

NARRATIVE: CASE EVENT DATE: 20240201
